FAERS Safety Report 8481506-5 (Version None)
Quarter: 2012Q3

REPORT INFORMATION
  Report Type: 
  Country: None (occurrence: None)
  Receive Date: 20120702
  Receipt Date: 20120622
  Transmission Date: 20120928
  Serious: Yes (Hospitalization, Other)
  Sender: FDA-Public Use
  Company Number: FR-JNJFOC-20120612950

PATIENT
  Sex: Female

DRUGS (12)
  1. ESTRACYT [Suspect]
     Route: 048
     Dates: start: 20091203, end: 20110101
  2. FASLODEX [Suspect]
     Indication: PRODUCT USED FOR UNKNOWN INDICATION
     Route: 048
     Dates: start: 20070201, end: 20070501
  3. XELODA [Suspect]
     Indication: METASTASES TO PLEURA
     Dosage: 4 COURSES
     Route: 048
     Dates: start: 20070701, end: 20071101
  4. FEMARA [Suspect]
     Indication: PRODUCT USED FOR UNKNOWN INDICATION
     Route: 048
     Dates: start: 20061101
  5. NAVOBAN [Suspect]
     Indication: METASTASES TO PLEURA
     Dosage: 4 COURSES
     Route: 048
     Dates: start: 20070701, end: 20071101
  6. DOXORUBICIN HCL [Suspect]
     Indication: PRODUCT USED FOR UNKNOWN INDICATION
     Dosage: 9 COURSES
     Route: 042
     Dates: start: 20090219, end: 20091105
  7. ESTRACYT [Suspect]
     Indication: PRODUCT USED FOR UNKNOWN INDICATION
     Route: 048
     Dates: start: 20110802
  8. ARIMIDEX [Suspect]
     Indication: PRODUCT USED FOR UNKNOWN INDICATION
     Route: 048
     Dates: start: 20080101, end: 20090201
  9. DOXORUBICIN HCL [Suspect]
     Dosage: 8 COURSES
     Route: 042
     Dates: start: 20071127, end: 20080624
  10. NAVELBINE [Suspect]
     Indication: METASTASES TO PLEURA
     Dosage: AT DAY 1 AND DAY 8 PER COURSE    4 COURSE
     Route: 042
     Dates: start: 20070701, end: 20071101
  11. AROMASIN [Suspect]
     Indication: PRODUCT USED FOR UNKNOWN INDICATION
     Route: 048
     Dates: start: 20061101, end: 20070201
  12. CYCLOPHOSPHAMIDE [Suspect]
     Indication: BREAST NEOPLASM
     Dosage: 14 DAYS ON 21 DAYS
     Route: 042
     Dates: start: 20110201

REACTIONS (2)
  - DRUG INTOLERANCE [None]
  - TONGUE NEOPLASM MALIGNANT STAGE UNSPECIFIED [None]
